FAERS Safety Report 12785091 (Version 1)
Quarter: 2016Q3

REPORT INFORMATION
  Report Type: Report from Study
  Country: FR (occurrence: FR)
  Receive Date: 20160927
  Receipt Date: 20160927
  Transmission Date: 20161109
  Serious: Yes (Other)
  Sender: FDA-Public Use
  Company Number: FR-BRISTOL-MYERS SQUIBB COMPANY-BMS-2016-077547

PATIENT
  Sex: Female

DRUGS (1)
  1. NIVOLUMAB [Suspect]
     Active Substance: NIVOLUMAB
     Indication: HODGKIN^S DISEASE
     Dosage: 3 MG/KG, UNK
     Route: 065
     Dates: start: 201606, end: 201608

REACTIONS (4)
  - Confusional state [Recovering/Resolving]
  - Cognitive disorder [Recovering/Resolving]
  - Product use issue [Unknown]
  - Affective disorder [Recovering/Resolving]
